FAERS Safety Report 16941873 (Version 1)
Quarter: 2019Q4

REPORT INFORMATION
  Report Type: Report from Study
  Country: CN (occurrence: CN)
  Receive Date: 20191021
  Receipt Date: 20191021
  Transmission Date: 20200122
  Serious: Yes (Hospitalization)
  Sender: FDA-Public Use
  Company Number: CN-BRISTOL-MYERS SQUIBB COMPANY-BMS-2019-099350

PATIENT
  Age: 64 Year
  Sex: Male

DRUGS (1)
  1. NIVOLUMAB [Suspect]
     Active Substance: NIVOLUMAB
     Indication: NON-SMALL CELL LUNG CANCER
     Dosage: 120 MILLIGRAM, Q2WK
     Route: 042
     Dates: start: 201908

REACTIONS (3)
  - Chest discomfort [Unknown]
  - General physical health deterioration [Unknown]
  - Asthma [Unknown]

NARRATIVE: CASE EVENT DATE: 201909
